FAERS Safety Report 5304123-4 (Version None)
Quarter: 2007Q2

REPORT INFORMATION
  Report Type: 
  Country: None (occurrence: None)
  Receive Date: 20070423
  Receipt Date: 20070412
  Transmission Date: 20071010
  Serious: Yes (Hospitalization)
  Sender: FDA-Public Use
  Company Number: PHEH2007US05357

PATIENT
  Age: 65 Year
  Sex: Female

DRUGS (17)
  1. ZELNORM [Suspect]
     Indication: IRRITABLE BOWEL SYNDROME
     Dosage: 6 MG, BID
     Route: 048
     Dates: start: 20061207, end: 20070411
  2. NOVOLOG [Concomitant]
  3. NOVOLIN N [Concomitant]
  4. PLAVIX [Concomitant]
  5. PREVACID [Concomitant]
  6. REMERON [Concomitant]
  7. SINGULAIR [Concomitant]
  8. SYNTHROID [Concomitant]
  9. K-DUR 10 [Concomitant]
  10. LASIX [Concomitant]
  11. NEURONTIN [Concomitant]
  12. ZETIA [Concomitant]
  13. ALLOPURINOL [Concomitant]
  14. XANAX [Concomitant]
  15. COLCHICINE [Concomitant]
  16. GLUCOTROL [Concomitant]
  17. IMDUR [Concomitant]

REACTIONS (3)
  - BLADDER CATHETERISATION [None]
  - HEART RATE IRREGULAR [None]
  - URINARY RETENTION [None]
